FAERS Safety Report 18935562 (Version 1)
Quarter: 2021Q1

REPORT INFORMATION
  Report Type: Spontaneous
  Country: US (occurrence: US)
  Receive Date: 20210224
  Receipt Date: 20210224
  Transmission Date: 20210420
  Serious: Yes (Hospitalization, Other)
  Sender: FDA-Public Use
  Company Number: US-BRISTOL-MYERS SQUIBB COMPANY-BMS-2021-014737

PATIENT
  Sex: Female

DRUGS (2)
  1. SPRYCEL [Suspect]
     Active Substance: DASATINIB
     Dosage: 50 MILLIGRAM, QD
     Route: 048
  2. SPRYCEL [Suspect]
     Active Substance: DASATINIB
     Indication: CHRONIC MYELOID LEUKAEMIA
     Dosage: UNK
     Route: 048
     Dates: start: 201901

REACTIONS (9)
  - Nausea [Unknown]
  - Constipation [Unknown]
  - Chest pain [Unknown]
  - Abdominal pain [Unknown]
  - Pruritus [Unknown]
  - Fatigue [Unknown]
  - Partial seizures [Unknown]
  - Neuralgia [Unknown]
  - Decreased appetite [Unknown]
